FAERS Safety Report 8215057-X (Version None)
Quarter: 2012Q1

REPORT INFORMATION
  Report Type: 
  Country: None (occurrence: None)
  Receive Date: 20120229
  Receipt Date: 20110510
  Transmission Date: 20120608
  Serious: Yes (Other)
  Sender: FDA-Public Use
  Company Number: PHHY2011US39938

PATIENT
  Sex: Female

DRUGS (1)
  1. NEORAL [Suspect]
     Indication: RENAL TRANSPLANT
     Dosage: 50 MG, BID, ORAL
     Route: 048
     Dates: start: 20100127, end: 20110505

REACTIONS (1)
  - SQUAMOUS CELL CARCINOMA [None]
